FAERS Safety Report 9867727 (Version 1)
Quarter: 2014Q1

REPORT INFORMATION
  Report Type: Spontaneous
  Country: CH (occurrence: CH)
  Receive Date: 20140204
  Receipt Date: 20140204
  Transmission Date: 20141002
  Serious: Yes (Other)
  Sender: FDA-Public Use
  Company Number: CH-B.I. PHARMACEUTICALS,INC./RIDGEFIELD-2014-BI-04133SI

PATIENT
  Sex: Male

DRUGS (9)
  1. GIOTRIF [Suspect]
     Indication: PRODUCT USED FOR UNKNOWN INDICATION
  2. GEFITINIB [Concomitant]
     Dates: start: 201103
  3. ZOLEDRONIC ACID [Concomitant]
     Dates: start: 201103
  4. CISPLATIN [Concomitant]
  5. PEMETREXED [Concomitant]
  6. DENOSUMAB [Concomitant]
  7. CARBOPLATIN [Concomitant]
  8. TAXOL [Concomitant]
  9. AVASTIN [Concomitant]

REACTIONS (2)
  - Disease progression [Unknown]
  - Diarrhoea [Unknown]
